FAERS Safety Report 24213112 (Version 1)
Quarter: 2024Q3

REPORT INFORMATION
  Report Type: Spontaneous
  Country: CN (occurrence: CN)
  Receive Date: 20240815
  Receipt Date: 20240815
  Transmission Date: 20241017
  Serious: Yes (Other)
  Sender: BAXTER
  Company Number: None

PATIENT
  Age: 69 Year
  Sex: Male
  Weight: 72 kg

DRUGS (2)
  1. CYCLOPHOSPHAMIDE [Suspect]
     Active Substance: CYCLOPHOSPHAMIDE
     Indication: Mesangioproliferative glomerulonephritis
     Dosage: 0.4 G, ONE TIME IN ONE DAY, DILUTED WITH 0.9% SODIUM CHLORIDE 500ML
     Route: 041
     Dates: start: 20240716, end: 20240716
  2. SODIUM CHLORIDE [Suspect]
     Active Substance: SODIUM CHLORIDE
     Indication: Medication dilution
     Dosage: 0.9% 500ML, ONE TIME IN ONE DAY, DILUTED WITH CYCLOPHOSPHAMIDE 0.4G
     Route: 041
     Dates: start: 20240716, end: 20240716

REACTIONS (2)
  - Cystitis haemorrhagic [Unknown]
  - Chromaturia [Unknown]

NARRATIVE: CASE EVENT DATE: 20240716
